FAERS Safety Report 10674142 (Version 1)
Quarter: 2014Q4

REPORT INFORMATION
  Report Type: Spontaneous
  Country: US (occurrence: None)
  Receive Date: 20141223
  Receipt Date: 20141223
  Transmission Date: 20150529
  Serious: Yes (Hospitalization)
  Sender: FDA-Public Use
  Company Number: DL2014-1151

PATIENT
  Age: 34 Year
  Sex: Female

DRUGS (5)
  1. MIFEPRISTONE TABLETS, 200 MG (DANCO LABS) [Suspect]
     Active Substance: MIFEPRISTONE
     Indication: ABORTION INDUCED
     Route: 048
     Dates: start: 20141111
  2. IBUPROFEN. [Concomitant]
     Active Substance: IBUPROFEN
  3. TYLENOL [Concomitant]
     Active Substance: ACETAMINOPHEN
  4. DOXYCYCLINE. [Suspect]
     Active Substance: DOXYCYCLINE
  5. MISOPROSTOL TABLETS, 200 MG [Suspect]
     Active Substance: MISOPROSTOL
     Route: 002

REACTIONS (7)
  - Haemodynamic instability [None]
  - Haematocrit abnormal [None]
  - Headache [None]
  - Cold sweat [None]
  - Haemoglobin decreased [None]
  - Haemorrhage [None]
  - Dizziness [None]

NARRATIVE: CASE EVENT DATE: 20141118
